FAERS Safety Report 14710471 (Version 1)
Quarter: 2018Q2

REPORT INFORMATION
  Report Type: Spontaneous
  Country: US (occurrence: US)
  Receive Date: 20180403
  Receipt Date: 20180403
  Transmission Date: 20180711
  Serious: No
  Sender: FDA-Public Use
  Company Number: US-ROCHE-2012444

PATIENT
  Sex: Female

DRUGS (9)
  1. ERIVEDGE [Suspect]
     Active Substance: VISMODEGIB
     Route: 048
     Dates: start: 201708
  2. LIDOCAINE. [Concomitant]
     Active Substance: LIDOCAINE
     Dosage: VI SOLUTION
     Route: 065
  3. PRAVASTATIN. [Concomitant]
     Active Substance: PRAVASTATIN
     Route: 065
  4. FLUTICASONE. [Concomitant]
     Active Substance: FLUTICASONE
     Dosage: 500 MCG/AC
     Route: 065
  5. OMEPRAZOLE. [Concomitant]
     Active Substance: OMEPRAZOLE
     Dosage: CPD AND TBE
     Route: 065
  6. HYDROCHLOROTHIAZIDE. [Concomitant]
     Active Substance: HYDROCHLOROTHIAZIDE
     Route: 065
  7. CHLORDIAZEPOXIDE. [Concomitant]
     Active Substance: CHLORDIAZEPOXIDE
     Route: 065
  8. DIVALPROEX [Concomitant]
     Active Substance: DIVALPROEX SODIUM
     Route: 065
  9. ERIVEDGE [Suspect]
     Active Substance: VISMODEGIB
     Indication: BASAL CELL CARCINOMA
     Route: 048
     Dates: start: 20170110

REACTIONS (4)
  - Nausea [Not Recovered/Not Resolved]
  - Alopecia [Not Recovered/Not Resolved]
  - Decreased appetite [Not Recovered/Not Resolved]
  - Diarrhoea [Not Recovered/Not Resolved]
